FAERS Safety Report 7461268-0 (Version None)
Quarter: 2011Q2

REPORT INFORMATION
  Report Type: 
  Country: None (occurrence: None)
  Receive Date: 20110506
  Receipt Date: 20110428
  Transmission Date: 20111010
  Serious: Yes (Hospitalization)
  Sender: FDA-Public Use
  Company Number: 2007BI010752

PATIENT
  Age: 46 Year
  Sex: Female
  Weight: 65 kg

DRUGS (4)
  1. TYSABRI [Suspect]
     Route: 042
     Dates: start: 20070621, end: 20101019
  2. LEVOXYL [Concomitant]
  3. BACLOFEN [Concomitant]
  4. TYSABRI [Suspect]
     Indication: MULTIPLE SCLEROSIS
     Route: 042
     Dates: start: 20070123, end: 20070320

REACTIONS (4)
  - MULTIPLE SCLEROSIS RELAPSE [None]
  - TRIGEMINAL NEURALGIA [None]
  - HERPES ZOSTER [None]
  - CHOLELITHIASIS [None]
